FAERS Safety Report 25874052 (Version 1)
Quarter: 2025Q4

REPORT INFORMATION
  Report Type: Spontaneous
  Country: US (occurrence: None)
  Receive Date: 20251002
  Receipt Date: 20251002
  Transmission Date: 20260117
  Serious: Yes (Hospitalization)
  Sender: FDA-CTU
  Company Number: None

PATIENT
  Sex: Male

DRUGS (1)
  1. NYVEPRIA [Suspect]
     Active Substance: PEGFILGRASTIM-APGF
     Indication: Bone cancer
     Dosage: OTHER FREQUENCY : SEE EVENT;?
     Route: 058

REACTIONS (2)
  - Neutropenia [None]
  - Pyrexia [None]
